FAERS Safety Report 8684700 (Version 2)
Quarter: 2013Q1

REPORT INFORMATION
  Report Type: Spontaneous
  Country: US (occurrence: US)
  Receive Date: 20120726
  Receipt Date: 20130222
  Transmission Date: 20140127
  Serious: No
  Sender: FDA-Public Use
  Company Number: US-ASTRAZENECA-2011SE28961

PATIENT
  Age: 40 Year
  Sex: Female

DRUGS (8)
  1. SEROQUEL [Suspect]
     Indication: BIPOLAR DISORDER
     Route: 048
     Dates: start: 2009
  2. SEROQUEL [Suspect]
     Indication: SLEEP DISORDER
     Route: 048
     Dates: start: 2009
  3. SEROQUEL [Suspect]
     Indication: BIPOLAR DISORDER
     Dosage: ADDITIONAL 300 MG TABLET AT NIGHT
     Route: 048
  4. SEROQUEL [Suspect]
     Indication: SLEEP DISORDER
     Dosage: ADDITIONAL 300 MG TABLET AT NIGHT
     Route: 048
  5. SEROQUEL [Suspect]
     Indication: BIPOLAR DISORDER
     Route: 048
  6. SEROQUEL [Suspect]
     Indication: SLEEP DISORDER
     Route: 048
  7. SEROQUEL [Suspect]
     Indication: BIPOLAR DISORDER
     Dosage: EXTRA HALF TABLET AT NIGHT
     Route: 048
  8. SEROQUEL [Suspect]
     Indication: SLEEP DISORDER
     Dosage: EXTRA HALF TABLET AT NIGHT
     Route: 048

REACTIONS (7)
  - Depression [Unknown]
  - Insomnia [Unknown]
  - Bipolar I disorder [Unknown]
  - Incorrect dose administered [Unknown]
  - Intentional drug misuse [Unknown]
  - Drug dose omission [Unknown]
  - Off label use [Unknown]
